FAERS Safety Report 23534049 (Version 3)
Quarter: 2025Q1

REPORT INFORMATION
  Report Type: Spontaneous
  Country: US (occurrence: US)
  Receive Date: 20240216
  Receipt Date: 20250331
  Transmission Date: 20250408
  Serious: Yes (Death, Hospitalization, Other)
  Sender: SK LIFE SCIENCE
  Company Number: US-SK LIFE SCIENCE, INC.-SKPVG-2024-000203

PATIENT

DRUGS (10)
  1. XCOPRI [Suspect]
     Active Substance: CENOBAMATE
     Indication: Seizure
     Dosage: 12.5 MILLIGRAM, ONCE DAILY AT NIGHT TIME
     Route: 048
     Dates: start: 202401
  2. XCOPRI [Suspect]
     Active Substance: CENOBAMATE
     Indication: Underweight
     Dosage: 100 MILLIGRAM, DAILY
     Route: 048
     Dates: start: 20240220, end: 20250322
  3. XCOPRI [Suspect]
     Active Substance: CENOBAMATE
     Indication: Parkinson^s disease
  4. ZONISAMIDE [Concomitant]
     Active Substance: ZONISAMIDE
     Indication: Product used for unknown indication
     Route: 065
  5. VIBEGRON [Concomitant]
     Active Substance: VIBEGRON
     Indication: Hypertonic bladder
     Route: 065
  6. CARBIDOPA AND LEVODOPA [Concomitant]
     Active Substance: CARBIDOPA\LEVODOPA
     Indication: Product used for unknown indication
     Dosage: 25-100MG, HE TAKES 1.5 TABS TWICE DAILY
     Route: 065
  7. LISINOPRIL [Concomitant]
     Active Substance: LISINOPRIL
     Indication: Product used for unknown indication
     Dosage: 2.5 MILLIGRAM, MORNING
     Route: 065
  8. EZETIMIBE [Concomitant]
     Active Substance: EZETIMIBE
     Indication: Product used for unknown indication
     Route: 065
  9. TRAZODONE [Concomitant]
     Active Substance: TRAZODONE HYDROCHLORIDE
     Indication: Insomnia
     Route: 065
  10. ESCITALOPRAM [Concomitant]
     Active Substance: ESCITALOPRAM OXALATE
     Indication: Product used for unknown indication
     Dosage: UNK, ONCE A NIGHT
     Route: 065

REACTIONS (17)
  - Death [Fatal]
  - Burns second degree [Unknown]
  - Hospitalisation [Recovered/Resolved]
  - Prostate infection [Not Recovered/Not Resolved]
  - Thrombosis [Unknown]
  - Seizure [Not Recovered/Not Resolved]
  - Seizure [Recovered/Resolved]
  - Off label use [Not Recovered/Not Resolved]
  - Blood urine present [Unknown]
  - Fall [Unknown]
  - Pyrexia [Unknown]
  - Bloody discharge [Unknown]
  - Adverse event [Unknown]
  - Adverse event [Unknown]
  - Prostatomegaly [Unknown]
  - Urinary tract infection [Unknown]
  - Dizziness [Unknown]

NARRATIVE: CASE EVENT DATE: 20240101
